FAERS Safety Report 10935476 (Version 1)
Quarter: 2015Q1

REPORT INFORMATION
  Report Type: Spontaneous
  Country: US (occurrence: US)
  Receive Date: 20150320
  Receipt Date: 20150320
  Transmission Date: 20150721
  Serious: Yes (Other)
  Sender: FDA-Public Use
  Company Number: US-GLAXOSMITHKLINE-US2015036883

PATIENT
  Age: 65 Year
  Sex: Female

DRUGS (1)
  1. COREG CR [Suspect]
     Active Substance: CARVEDILOL PHOSPHATE
     Indication: HYPERTENSION
     Route: 048

REACTIONS (3)
  - Breast cancer [Recovered/Resolved]
  - Surgery [Unknown]
  - Dizziness [Unknown]

NARRATIVE: CASE EVENT DATE: 201407
